FAERS Safety Report 7342554-1 (Version None)
Quarter: 2011Q1

REPORT INFORMATION
  Report Type: 
  Country: None (occurrence: None)
  Receive Date: 20110310
  Receipt Date: 20110303
  Transmission Date: 20110831
  Serious: Yes (Death)
  Sender: FDA-Public Use
  Company Number: PHHY2010JP86444

PATIENT
  Sex: Male

DRUGS (7)
  1. CGP 42446 [Suspect]
     Indication: METASTASES TO BONE
     Dosage: 4 MG,SINGLE DOSE
     Route: 041
     Dates: start: 20071128, end: 20071128
  2. DEPAS [Concomitant]
     Dosage: 0.5 MG, UNK
     Route: 048
     Dates: start: 20071203, end: 20071212
  3. MYSLEE [Concomitant]
     Dosage: 5 MG, UNK
     Route: 048
     Dates: start: 20071203, end: 20071212
  4. MAGNESIUM OXIDE [Concomitant]
     Dosage: 2 G, UNK
     Route: 048
     Dates: start: 20071203, end: 20071212
  5. PRIMPERAN TAB [Concomitant]
     Dosage: 15 MG, UNK
     Route: 048
     Dates: start: 20071203, end: 20071212
  6. LOXONIN [Concomitant]
     Dosage: 180 MG, UNK
     Route: 048
     Dates: start: 20071004, end: 20071212
  7. OXYCONTIN [Concomitant]
     Dosage: 20 MG, UNK
     Route: 048
     Dates: start: 20071203, end: 20071212

REACTIONS (2)
  - MENINGEAL DISORDER [None]
  - NEOPLASM MALIGNANT [None]
